FAERS Safety Report 10190097 (Version 3)
Quarter: 2014Q3

REPORT INFORMATION
  Report Type: Spontaneous
  Country: DE (occurrence: DE)
  Receive Date: 20140522
  Receipt Date: 20140723
  Transmission Date: 20150326
  Serious: Yes (Hospitalization)
  Sender: FDA-Public Use
  Company Number: DE-CUBIST PHARMACEUTICAL, INC.-2014CBST000693

PATIENT

DRUGS (6)
  1. CUBICIN [Suspect]
     Active Substance: DAPTOMYCIN
     Dosage: 4.9 MG, QD
     Route: 042
     Dates: start: 20140218, end: 20140227
  2. CUBICIN [Suspect]
     Active Substance: DAPTOMYCIN
     Dosage: 300 MG, UNK
     Route: 042
     Dates: start: 20140302, end: 20140305
  3. CUBICIN [Suspect]
     Active Substance: DAPTOMYCIN
     Indication: OFF LABEL USE
     Dosage: 4.9 MG/KG, ONCE DAILY
     Route: 042
     Dates: start: 20140316, end: 20140427
  4. CUBICIN [Suspect]
     Active Substance: DAPTOMYCIN
     Dosage: 2.9 MG/KG, UNK
     Route: 042
     Dates: start: 20140302, end: 20140305
  5. CUBICIN [Suspect]
     Active Substance: DAPTOMYCIN
     Indication: STAPHYLOCOCCAL INFECTION
     Dosage: 500 MG, ONCE DAILY
     Route: 042
     Dates: start: 20140316, end: 20140427
  6. CUBICIN [Suspect]
     Active Substance: DAPTOMYCIN
     Dosage: 500 MG, QD
     Route: 042
     Dates: start: 20140218, end: 20140227

REACTIONS (3)
  - Pleural effusion [Unknown]
  - Renal impairment [Unknown]
  - Drug resistance [Recovered/Resolved]

NARRATIVE: CASE EVENT DATE: 20140430
